FAERS Safety Report 21164895 (Version 1)
Quarter: 2022Q3

REPORT INFORMATION
  Report Type: Spontaneous
  Country: FR (occurrence: FR)
  Receive Date: 20220803
  Receipt Date: 20220803
  Transmission Date: 20221026
  Serious: Yes (Hospitalization, Other)
  Sender: FDA-Public Use
  Company Number: None

PATIENT
  Age: 87 Year
  Sex: Female
  Weight: 50.5 kg

DRUGS (4)
  1. IRBESARTAN [Suspect]
     Active Substance: IRBESARTAN
     Indication: Hypertension
     Dosage: 75MG QD
     Route: 048
     Dates: start: 20220709, end: 20220711
  2. CEFTRIAXONE [Suspect]
     Active Substance: CEFTRIAXONE
     Indication: Urinary tract infection bacterial
     Dosage: 1G QD
     Route: 042
     Dates: start: 20220702, end: 20220707
  3. APIXABAN [Suspect]
     Active Substance: APIXABAN
     Indication: Pulmonary embolism
     Dosage: 2.5 MG TWICE A DAY
     Route: 048
     Dates: start: 20220708, end: 20220713
  4. PREDNISOLONE [Suspect]
     Active Substance: PREDNISOLONE
     Indication: Gout
     Dosage: 20MG QD
     Route: 048
     Dates: start: 20220704, end: 20220707

REACTIONS (1)
  - Neutropenia [Recovered/Resolved]
